FAERS Safety Report 6664328-7 (Version None)
Quarter: 2010Q2

REPORT INFORMATION
  Report Type: 
  Country: None (occurrence: None)
  Receive Date: 20100401
  Receipt Date: 20100324
  Transmission Date: 20101027
  Serious: Yes (Hospitalization, Other)
  Sender: FDA-Public Use
  Company Number: PHEH2010US03326

PATIENT
  Sex: Female
  Weight: 77.5 kg

DRUGS (11)
  1. EXJADE [Suspect]
     Indication: MYELOFIBROSIS
     Dosage: 1500 MG, QD
     Route: 048
     Dates: start: 20091218
  2. NEULASTA [Concomitant]
  3. PREMARIN [Concomitant]
  4. CYANOCOBALAMIN [Concomitant]
  5. IMODIUM A-D [Concomitant]
  6. VIDAZA [Concomitant]
  7. PROCRIT                            /00909301/ [Concomitant]
  8. ACYCLOVIR [Concomitant]
  9. CIPRO [Concomitant]
  10. PROCHLORPERAZINE [Concomitant]
  11. CEPHALEXIN [Concomitant]

REACTIONS (1)
  - INFECTION [None]
